FAERS Safety Report 7818609-1 (Version None)
Quarter: 2011Q4

REPORT INFORMATION
  Report Type: 
  Country: None (occurrence: None)
  Receive Date: 20111017
  Receipt Date: 20111006
  Transmission Date: 20120403
  Serious: Yes (Hospitalization, Other)
  Sender: FDA-Public Use
  Company Number: US-BAXTER-2011BH031442

PATIENT
  Sex: Female

DRUGS (2)
  1. DIANEAL [Suspect]
     Indication: PERITONEAL DIALYSIS
     Route: 033
     Dates: start: 20090101
  2. EXTRANEAL [Suspect]
     Indication: PERITONEAL DIALYSIS
     Route: 033
     Dates: start: 20090101

REACTIONS (8)
  - HAEMOGLOBIN DECREASED [None]
  - HYPOPHAGIA [None]
  - LUNG NEOPLASM MALIGNANT [None]
  - RECTAL HAEMORRHAGE [None]
  - DYSPNOEA [None]
  - LEUKAEMIA [None]
  - DIVERTICULUM [None]
  - PULMONARY OEDEMA [None]
